FAERS Safety Report 16095351 (Version 3)
Quarter: 2019Q3

REPORT INFORMATION
  Report Type: Other
  Country: CA (occurrence: CA)
  Receive Date: 20190320
  Receipt Date: 20190918
  Transmission Date: 20191004
  Serious: Yes (Other)
  Sender: FDA-Public Use
  Company Number: CA-BECTON DICKINSON-2019BDN00108

PATIENT
  Age: 42 Year
  Sex: Female
  Weight: 81 kg

DRUGS (43)
  1. CHLORHEXIDINE [Suspect]
     Active Substance: CHLORHEXIDINE
  2. CIMZIA [Suspect]
     Active Substance: CERTOLIZUMAB PEGOL
     Indication: RHEUMATOID ARTHRITIS
     Dosage: 400 MG CYCLICAL
     Route: 058
  3. PERIOGARD [Suspect]
     Active Substance: CHLORHEXIDINE GLUCONATE
  4. D-ALPHA TOCOPHEROL [Concomitant]
     Active Substance: .ALPHA.-TOCOPHEROL, D-
  5. OXYCODONE HYDROCHLORIDE. [Suspect]
     Active Substance: OXYCODONE HYDROCHLORIDE
  6. CHOLECALCIFEROL [Suspect]
     Active Substance: CHOLECALCIFEROL
  7. ASCORBIC ACID (VITAMIN C) [Concomitant]
     Active Substance: ASCORBIC ACID
  8. CAMELLIA SINENSIS/D-ALPHA TOCOPHEROL/FISH OIL/VITAMIN D3 [Concomitant]
  9. COENZYME Q10 [Concomitant]
     Active Substance: UBIDECARENONE
  10. HYDROXYCHLOROQUINE SULFATE. [Concomitant]
     Active Substance: HYDROXYCHLOROQUINE SULFATE
  11. LEFLUNOMIDE. [Suspect]
     Active Substance: LEFLUNOMIDE
     Dosage: UNK
  12. PREDNISONE. [Concomitant]
     Active Substance: PREDNISONE
  13. VITAMIN E [Concomitant]
     Active Substance: .ALPHA.-TOCOPHEROL
  14. ENBREL [Suspect]
     Active Substance: ETANERCEPT
     Indication: RHEUMATOID ARTHRITIS
     Route: 058
  15. ZOPICLONE [Concomitant]
     Active Substance: ZOPICLONE
  16. HYDROXYCHLOROQUINE [Concomitant]
     Active Substance: HYDROXYCHLOROQUINE
  17. DESOGESTREL/ETHINYL ESTRADIOL [Concomitant]
     Active Substance: DESOGESTREL\ETHINYL ESTRADIOL
  18. PANTOPRAZOLE [Concomitant]
     Active Substance: PANTOPRAZOLE
  19. CAMELLIA SINENSIS [Concomitant]
     Active Substance: GREEN TEA LEAF
  20. OXYCODONE TEREPHTHALATE [Suspect]
     Active Substance: OXYCODONE TEREPHTHALATE
  21. ACETAMINOPHEN. [Suspect]
     Active Substance: ACETAMINOPHEN
  22. ACETAMINOPHEN/OXYCODONE HYDROCHLORIDE/OXYCODONE TEREPHTHALATE [Suspect]
     Active Substance: ACETAMINOPHEN\OXYCODONE HYDROCHLORIDE\OXYCODONE TEREPHTHALATE
  23. IBUPROFEN. [Concomitant]
     Active Substance: IBUPROFEN
  24. GREEN TEA TINCTURE [Concomitant]
  25. PANTOPRAZOLE SODIUM ANHYDROUS [Concomitant]
     Active Substance: PANTOPRAZOLE SODIUM ANHYDROUS
  26. LEFLUNOMIDE. [Suspect]
     Active Substance: LEFLUNOMIDE
     Dosage: UNK
     Route: 048
  27. ORENCIA [Suspect]
     Active Substance: ABATACEPT
  28. METHOTREXATE SODIUM. [Suspect]
     Active Substance: METHOTREXATE SODIUM
  29. ERGOCALCIFEROL. [Concomitant]
     Active Substance: ERGOCALCIFEROL
  30. VENTOLIN [Concomitant]
     Active Substance: ALBUTEROL SULFATE
  31. REACTINE [Concomitant]
  32. FISH OIL [Concomitant]
     Active Substance: FISH OIL
  33. PANTOLOC [Concomitant]
     Active Substance: PANTOPRAZOLE SODIUM
  34. OXYCODONE [Suspect]
     Active Substance: OXYCODONE
  35. ACTEMRA [Suspect]
     Active Substance: TOCILIZUMAB
  36. SIMPONI [Suspect]
     Active Substance: GOLIMUMAB
     Route: 058
  37. ARAVA [Suspect]
     Active Substance: LEFLUNOMIDE
  38. OXYCODONE-ACETAMINOPHEN [Suspect]
     Active Substance: ACETAMINOPHEN\OXYCODONE HYDROCHLORIDE
  39. ACT OXYCODONE CR [Suspect]
     Active Substance: ACETAMINOPHEN\OXYCODONE HYDROCHLORIDE
  40. TYLENOL [Concomitant]
     Active Substance: ACETAMINOPHEN
  41. PLAQUENIL [Concomitant]
     Active Substance: HYDROXYCHLOROQUINE SULFATE
  42. VITAMIN D3 [Concomitant]
     Active Substance: CHOLECALCIFEROL
  43. CETIRIZINE [Concomitant]
     Active Substance: CETIRIZINE HYDROCHLORIDE

REACTIONS (21)
  - Insomnia [Unknown]
  - Respiratory disorder [Unknown]
  - Ear pain [Unknown]
  - Back pain [Unknown]
  - Pruritus generalised [Unknown]
  - Lower respiratory tract infection [Unknown]
  - Night sweats [Unknown]
  - Peripheral swelling [Unknown]
  - Contraindicated product administered [Unknown]
  - Abdominal pain upper [Unknown]
  - Headache [Unknown]
  - Pain [Unknown]
  - Diarrhoea [Unknown]
  - Rash [Unknown]
  - Asthenia [Unknown]
  - Sinusitis [Unknown]
  - Muscle spasticity [Unknown]
  - Vomiting [Unknown]
  - Joint swelling [Unknown]
  - Body temperature increased [Unknown]
  - Urticaria [Unknown]
